FAERS Safety Report 5187797-0 (Version None)
Quarter: 2006Q4

REPORT INFORMATION
  Report Type: 
  Country: None (occurrence: None)
  Receive Date: 20061212
  Receipt Date: 20061130
  Transmission Date: 20070319
  Serious: Yes (Other)
  Sender: FDA-Public Use
  Company Number: 2006148661

PATIENT
  Sex: Female

DRUGS (1)
  1. LISTERINE VANILLA MINT (MENTHOL, METHYL SALICYLATE, EUCALYPTOL, THYMOL [Suspect]
     Indication: ALCOHOL POISONING
     Dosage: 2-3 BOTTLE (250 ML) ORAL
     Route: 048

REACTIONS (3)
  - DIARRHOEA [None]
  - INTENTIONAL DRUG MISUSE [None]
  - VOMITING [None]
